FAERS Safety Report 16662761 (Version 2)
Quarter: 2020Q1

REPORT INFORMATION
  Report Type: Report from Study
  Country: US (occurrence: US)
  Receive Date: 20190802
  Receipt Date: 20200129
  Transmission Date: 20200409
  Serious: No
  Sender: FDA-Public Use
  Company Number: US-EXELIXIS-CABO-18017962

PATIENT
  Sex: Male

DRUGS (16)
  1. COMETRIQ [Suspect]
     Active Substance: CABOZANTINIB S-MALATE
     Dosage: 60 MG, QD
     Route: 048
     Dates: start: 20180313, end: 2018
  2. VITAMIN B12 [Concomitant]
     Active Substance: CYANOCOBALAMIN
  3. GABAPENTIN. [Concomitant]
     Active Substance: GABAPENTIN
  4. LIPITOR [Concomitant]
     Active Substance: ATORVASTATIN CALCIUM
  5. COMETRIQ [Suspect]
     Active Substance: CABOZANTINIB S-MALATE
     Indication: THYROID CANCER
     Dosage: 140 MG, QD
     Route: 048
     Dates: start: 20180101, end: 201802
  6. COMETRIQ [Suspect]
     Active Substance: CABOZANTINIB S-MALATE
     Dosage: 20 MG, QD
     Route: 048
     Dates: start: 201804, end: 2018
  7. PRILOSEC [Concomitant]
     Active Substance: OMEPRAZOLE MAGNESIUM
  8. ANORO ELLIPTA [Concomitant]
     Active Substance: UMECLIDINIUM BROMIDE\VILANTEROL TRIFENATATE
  9. LOMOTIL [Concomitant]
     Active Substance: ATROPINE SULFATE\DIPHENOXYLATE HYDROCHLORIDE
  10. COMETRIQ [Suspect]
     Active Substance: CABOZANTINIB S-MALATE
     Dosage: 40 MG, QD
     Route: 048
     Dates: start: 20180913
  11. SYNTHROID [Concomitant]
     Active Substance: LEVOTHYROXINE SODIUM
  12. COMETRIQ [Suspect]
     Active Substance: CABOZANTINIB S-MALATE
     Dosage: 80 MG, QD
     Route: 048
     Dates: start: 201802, end: 2018
  13. FENOFIBRATE. [Concomitant]
     Active Substance: FENOFIBRATE
  14. AMBIEN [Concomitant]
     Active Substance: ZOLPIDEM TARTRATE
  15. COMETRIQ [Suspect]
     Active Substance: CABOZANTINIB S-MALATE
     Dosage: 140 MG, QD
     Route: 048
     Dates: start: 201802, end: 201802
  16. MULTIVITAMINS, COMBINATIONS [Concomitant]
     Active Substance: VITAMINS

REACTIONS (2)
  - Diarrhoea [Unknown]
  - Pain in extremity [Unknown]
